FAERS Safety Report 8379685-3 (Version None)
Quarter: 2012Q2

REPORT INFORMATION
  Report Type: 
  Country: None (occurrence: None)
  Receive Date: 20120523
  Receipt Date: 20120515
  Transmission Date: 20120825
  Serious: Yes (Other)
  Sender: FDA-Public Use
  Company Number: JP-ASTELLAS-2012JP000433

PATIENT
  Age: 33 Year
  Sex: Male

DRUGS (5)
  1. PROGRAF [Suspect]
     Indication: LUPUS NEPHRITIS
     Dosage: 3 MG, UNKNOWN/D
     Route: 048
  2. STEROID [Suspect]
     Dosage: 30 MG, UNKNOWN/D
     Route: 048
  3. STEROID [Suspect]
     Dosage: UNK
     Route: 048
  4. INSULIN [Concomitant]
     Route: 065
  5. PREDNISOLONE [Concomitant]
     Indication: STEROID THERAPY
     Dosage: 40 MG, UNKNOWN/D
     Route: 065

REACTIONS (2)
  - HYPERGLYCAEMIC HYPEROSMOLAR NONKETOTIC SYNDROME [None]
  - DIABETIC KETOACIDOSIS [None]
